FAERS Safety Report 21598476 (Version 1)
Quarter: 2022Q4

REPORT INFORMATION
  Report Type: Spontaneous
  Country: KR (occurrence: KR)
  Receive Date: 20221115
  Receipt Date: 20221115
  Transmission Date: 20230113
  Serious: Yes (Other)
  Sender: FDA-Public Use
  Company Number: KR-MYLANLABS-2022M1126032

PATIENT
  Age: 49 Year
  Sex: Female

DRUGS (2)
  1. LYRICA [Suspect]
     Active Substance: PREGABALIN
     Indication: Prurigo
     Dosage: 25 MILLIGRAM, QD
     Route: 065
     Dates: start: 20170831, end: 20170831
  2. EPERISONE HYDROCHLORIDE [Suspect]
     Active Substance: EPERISONE HYDROCHLORIDE
     Indication: Prurigo
     Dosage: 50 MILLIGRAM, QD
     Route: 065
     Dates: start: 20170831, end: 20170831

REACTIONS (4)
  - Angioedema [Recovered/Resolved]
  - Face oedema [Recovered/Resolved]
  - Oedema [Recovered/Resolved]
  - Off label use [Unknown]

NARRATIVE: CASE EVENT DATE: 20170831
